FAERS Safety Report 7502517-X (Version None)
Quarter: 2011Q2

REPORT INFORMATION
  Report Type: 
  Country: None (occurrence: None)
  Receive Date: 20110523
  Receipt Date: 20110523
  Transmission Date: 20111010
  Serious: Yes (Hospitalization)
  Sender: FDA-Public Use
  Company Number: None

PATIENT
  Age: 58 Year
  Sex: Female
  Weight: 82.5 kg

DRUGS (1)
  1. ZOMETA [Suspect]

REACTIONS (2)
  - SUPERINFECTION BACTERIAL [None]
  - OSTEONECROSIS OF JAW [None]
